FAERS Safety Report 8377488-7 (Version None)
Quarter: 2012Q2

REPORT INFORMATION
  Report Type: 
  Country: None (occurrence: None)
  Receive Date: 20120522
  Receipt Date: 20120103
  Transmission Date: 20120825
  Serious: No
  Sender: FDA-Public Use
  Company Number: US-ASTRAZENECA-2012SE00370

PATIENT
  Age: 62 Year
  Sex: Female
  Weight: 56.7 kg

DRUGS (4)
  1. ZANTAC [Suspect]
     Indication: DYSPEPSIA
     Route: 065
  2. OMEPRAZOLE [Suspect]
     Indication: DYSPEPSIA
     Route: 048
  3. DICYCLOMINE [Concomitant]
     Indication: DIVERTICULITIS
  4. PLAVIX [Suspect]
     Route: 065
     Dates: start: 20080601

REACTIONS (2)
  - INHIBITORY DRUG INTERACTION [None]
  - DIARRHOEA [None]
